FAERS Safety Report 5962049-7 (Version None)
Quarter: 2008Q4

REPORT INFORMATION
  Report Type: 
  Country: None (occurrence: None)
  Receive Date: 20081121
  Receipt Date: 20081111
  Transmission Date: 20090506
  Serious: Yes (Other)
  Sender: FDA-Public Use
  Company Number: PHHO2007NZ04847

PATIENT
  Sex: Male

DRUGS (1)
  1. CLOZARIL [Suspect]
     Indication: SCHIZOPHRENIA
     Route: 048
     Dates: start: 20070213

REACTIONS (5)
  - EOSINOPHIL COUNT INCREASED [None]
  - LEUKOCYTOSIS [None]
  - MONOCYTE COUNT INCREASED [None]
  - NEUTROPHIL PERCENTAGE INCREASED [None]
  - PLATELET COUNT INCREASED [None]
